FAERS Safety Report 11789378 (Version 1)
Quarter: 2015Q4

REPORT INFORMATION
  Report Type: Spontaneous
  Country: JP (occurrence: JP)
  Receive Date: 20151201
  Receipt Date: 20151201
  Transmission Date: 20160305
  Serious: Yes (Other)
  Sender: FDA-Public Use
  Company Number: JP-PFIZER INC-2015401505

PATIENT
  Age: 81 Year
  Sex: Male

DRUGS (2)
  1. BROTIZOLAM [Interacting]
     Active Substance: BROTIZOLAM
     Indication: SLEEP DISORDER
     Dosage: UNK
  2. VFEND [Suspect]
     Active Substance: VORICONAZOLE
     Indication: ASPERGILLUS INFECTION
     Dosage: 200 MG, 2X/DAY
     Route: 048
     Dates: start: 20151105, end: 20151118

REACTIONS (4)
  - Drug level increased [Unknown]
  - Hepatic function abnormal [Not Recovered/Not Resolved]
  - Delirium [Not Recovered/Not Resolved]
  - Drug interaction [Unknown]
